FAERS Safety Report 9607697 (Version 1)
Quarter: 2013Q4

REPORT INFORMATION
  Report Type: Spontaneous
  Country: US (occurrence: None)
  Receive Date: 20131007
  Receipt Date: 20131007
  Transmission Date: 20140711
  Serious: Yes (Disabling, Other)
  Sender: FDA-Public Use
  Company Number: None

PATIENT
  Age: 32 Year
  Sex: Female
  Weight: 64.41 kg

DRUGS (1)
  1. BELVIQ [Suspect]
     Indication: WEIGHT DECREASED
     Dosage: 1 PILL TWICE DAILY TAKEN BY MOUTH
     Route: 048
     Dates: start: 20130729, end: 20130928

REACTIONS (11)
  - Withdrawal syndrome [None]
  - Dizziness [None]
  - Nausea [None]
  - Heart rate increased [None]
  - Hypertension [None]
  - Tremor [None]
  - Fatigue [None]
  - Headache [None]
  - Cardiac murmur [None]
  - Cold sweat [None]
  - Peripheral coldness [None]
